FAERS Safety Report 11139905 (Version 7)
Quarter: 2015Q4

REPORT INFORMATION
  Report Type: Spontaneous
  Country: US (occurrence: US)
  Receive Date: 20150527
  Receipt Date: 20151113
  Transmission Date: 20160304
  Serious: Yes (Other)
  Sender: FDA-Public Use
  Company Number: US-PFIZER INC-2015141903

PATIENT
  Age: 67 Year
  Sex: Male

DRUGS (20)
  1. FERROUS SULFATE [Concomitant]
     Active Substance: FERROUS SULFATE\FERROUS SULFATE, DRIED
  2. VITAMIN C [Concomitant]
     Active Substance: ASCORBIC ACID
  3. ADVAIR HFA [Concomitant]
     Active Substance: FLUTICASONE PROPIONATE\SALMETEROL XINAFOATE
  4. PROCHLORPERAZINE MALEATE. [Concomitant]
     Active Substance: PROCHLORPERAZINE MALEATE
     Dosage: UNK
  5. NORCO [Concomitant]
     Active Substance: ACETAMINOPHEN\HYDROCODONE BITARTRATE
     Dosage: UNK
  6. BABY ASPIRIN [Concomitant]
     Active Substance: ASPIRIN
  7. B-COMPLEX VITAMIN [Concomitant]
  8. LOW DOSE ASPIRIN [Concomitant]
     Active Substance: ASPIRIN
     Dosage: UNK
  9. XANAX [Concomitant]
     Active Substance: ALPRAZOLAM
     Dosage: UNK
  10. AMLODIPINE [Concomitant]
     Active Substance: AMLODIPINE BESYLATE
  11. LISINOPRIL. [Concomitant]
     Active Substance: LISINOPRIL
  12. LEVOTHYROXINE. [Concomitant]
     Active Substance: LEVOTHYROXINE
  13. MOMETASONE FUROATE. [Concomitant]
     Active Substance: MOMETASONE FUROATE
     Dosage: UNK
  14. SIMVASTATIN. [Concomitant]
     Active Substance: SIMVASTATIN
  15. PROAIR INHALER [Concomitant]
  16. HYDROCORTISONE. [Concomitant]
     Active Substance: HYDROCORTISONE
  17. SUTENT [Suspect]
     Active Substance: SUNITINIB MALATE
     Indication: RENAL CANCER STAGE IV
     Dosage: 50 MG, CYCLIC (2 WEEKS ON/1 WEEK OFF)
     Dates: start: 20150424, end: 20151020
  18. SUTENT [Suspect]
     Active Substance: SUNITINIB MALATE
     Dosage: 50 MG, DAILY, 28 DAYS ON AND 14 DAYS OFF
     Route: 048
     Dates: start: 20150416
  19. ZOFRAN [Concomitant]
     Active Substance: ONDANSETRON HYDROCHLORIDE
     Indication: PROPHYLAXIS OF NAUSEA AND VOMITING
     Dosage: UNK
  20. LORATADINE. [Concomitant]
     Active Substance: LORATADINE
     Dosage: UNK

REACTIONS (36)
  - Osteonecrosis of jaw [Unknown]
  - Palmar-plantar erythrodysaesthesia syndrome [Unknown]
  - Diarrhoea [Unknown]
  - Blister [Recovered/Resolved]
  - Oral pain [Recovering/Resolving]
  - Blood pressure increased [Recovered/Resolved]
  - Cough [Unknown]
  - Fatigue [Unknown]
  - Dry skin [Unknown]
  - Lip dry [Unknown]
  - Nasal dryness [Recovered/Resolved]
  - Alopecia [Unknown]
  - Nasal polyps [Recovering/Resolving]
  - Glossodynia [Unknown]
  - Gingival pain [Unknown]
  - Rhinorrhoea [Unknown]
  - Depression [Unknown]
  - Oral discomfort [Unknown]
  - Tenderness [Unknown]
  - Defaecation urgency [Unknown]
  - Pain of skin [Unknown]
  - Nail discolouration [Unknown]
  - Lacrimation increased [Unknown]
  - Pain in extremity [Unknown]
  - Oral mucosal blistering [Recovering/Resolving]
  - Sinus perforation [Unknown]
  - Tooth disorder [Unknown]
  - Epistaxis [Unknown]
  - Eczema [Unknown]
  - Hair colour changes [Unknown]
  - Swelling face [Unknown]
  - Hyperchlorhydria [Unknown]
  - Anaemia [Unknown]
  - Stomatitis [Recovering/Resolving]
  - Dry mouth [Unknown]
  - Foot deformity [Unknown]

NARRATIVE: CASE EVENT DATE: 20150805
